FAERS Safety Report 4514199-X (Version None)
Quarter: 2004Q4

REPORT INFORMATION
  Report Type: 
  Country: None (occurrence: None)
  Receive Date: 20041126
  Receipt Date: 20041109
  Transmission Date: 20050328
  Serious: Yes (Hospitalization)
  Sender: FDA-Public Use
  Company Number: ATO-04-0773

PATIENT
  Age: 72 Year
  Sex: Female
  Weight: 66.2 kg

DRUGS (7)
  1. TRISENOX [Suspect]
     Indication: ENDOMETRIAL CANCER
     Dosage: 9.9 MG (0.15 MG/M2, 2X/WK FOR 4 WKS WITH 2 WK BREAK), IVI
     Route: 042
     Dates: start: 20040803, end: 20040813
  2. CARDIZEM [Concomitant]
  3. WARFARIN SODIUM [Concomitant]
  4. NIFEREX [Concomitant]
  5. MAGNESIUM OXIDE [Concomitant]
  6. TYLENOL (CAPLET) [Concomitant]
  7. COLACE [Concomitant]

REACTIONS (8)
  - ASTHENIA [None]
  - CARDIAC FAILURE CONGESTIVE [None]
  - CONDITION AGGRAVATED [None]
  - DYSPNOEA EXACERBATED [None]
  - EJECTION FRACTION DECREASED [None]
  - ELECTROCARDIOGRAM QT CORRECTED INTERVAL PROLONGED [None]
  - MITRAL VALVE INCOMPETENCE [None]
  - PLEURAL EFFUSION [None]
